FAERS Safety Report 6311395-6 (Version None)
Quarter: 2009Q3

REPORT INFORMATION
  Report Type: 
  Country: None (occurrence: None)
  Receive Date: 20090817
  Receipt Date: 20090805
  Transmission Date: 20100115
  Serious: Yes (Death)
  Sender: FDA-Public Use
  Company Number: US-PFIZER INC-2009233830

PATIENT
  Age: 75 Year
  Sex: Female
  Weight: 48 kg

DRUGS (5)
  1. SUNITINIB MALATE [Suspect]
     Indication: LUNG NEOPLASM MALIGNANT
     Dosage: 37.5 MG, 1X/DAY
     Route: 048
     Dates: start: 20090521, end: 20090615
  2. SUNITINIB MALATE [Suspect]
     Dosage: 25 MG, 1X/DAY
     Route: 048
     Dates: start: 20090622, end: 20090626
  3. PRILOSEC [Concomitant]
     Dosage: UNK
     Route: 048
     Dates: start: 20090501, end: 20090626
  4. PREDNISONE [Concomitant]
     Dosage: UNK
     Route: 048
     Dates: start: 20090610, end: 20090626
  5. PERCOCET [Concomitant]
     Dosage: UNK
     Route: 048
     Dates: start: 20090615, end: 20090627

REACTIONS (3)
  - ACUTE MYOCARDIAL INFARCTION [None]
  - HAEMORRHAGE [None]
  - THROMBOCYTOPENIA [None]
